FAERS Safety Report 22029671 (Version 1)
Quarter: 2023Q1

REPORT INFORMATION
  Report Type: Spontaneous
  Country: BR (occurrence: DZ)
  Receive Date: 20230223
  Receipt Date: 20230223
  Transmission Date: 20230417
  Serious: Yes (Death)
  Sender: FDA-Public Use
  Company Number: BR-BIOMARINAP-DZ-2023-148731

PATIENT

DRUGS (1)
  1. NAGLAZYME [Suspect]
     Active Substance: GALSULFASE
     Indication: Mucopolysaccharidosis VI
     Dosage: 25 MILLIGRAM, QW
     Route: 042
     Dates: start: 20161113

REACTIONS (1)
  - Asphyxia [Fatal]

NARRATIVE: CASE EVENT DATE: 20230216
